FAERS Safety Report 9127928 (Version 1)
Quarter: 2013Q1

REPORT INFORMATION
  Report Type: Spontaneous
  Country: US (occurrence: US)
  Receive Date: 20130228
  Receipt Date: 20130228
  Transmission Date: 20140127
  Serious: No
  Sender: FDA-Public Use
  Company Number: US-BRISTOL-MYERS SQUIBB COMPANY-17239625

PATIENT
  Age: 62 Year
  Sex: Female

DRUGS (10)
  1. KOMBIGLYZE XR [Suspect]
  2. ACETAZOLAMIDE [Concomitant]
  3. LUMIGAN [Concomitant]
  4. HYDRALAZINE [Concomitant]
  5. MONTELUKAST [Concomitant]
  6. INVEGA [Concomitant]
  7. DESLORATADINE [Concomitant]
  8. LITHIUM CARBONATE [Concomitant]
  9. PRAVASTATIN SODIUM [Concomitant]
  10. ENALAPRIL [Concomitant]

REACTIONS (1)
  - Blood glucose decreased [Unknown]
